FAERS Safety Report 15722275 (Version 1)
Quarter: 2018Q4

REPORT INFORMATION
  Report Type: Spontaneous
  Country: CH (occurrence: CH)
  Receive Date: 20181214
  Receipt Date: 20181214
  Transmission Date: 20190205
  Serious: Yes (Other)
  Sender: FDA-Public Use
  Company Number: CH-TEVA-2018-CH-986659

PATIENT
  Age: 83 Year
  Sex: Male

DRUGS (23)
  1. IPRAMOL [Suspect]
     Active Substance: ALBUTEROL SULFATE\IPRATROPIUM BROMIDE
     Indication: CHRONIC OBSTRUCTIVE PULMONARY DISEASE
     Route: 045
     Dates: start: 20171031, end: 20171106
  2. RESONIUM-A [Suspect]
     Active Substance: SODIUM POLYSTYRENE SULFONATE
     Indication: HYPERKALAEMIA
     Route: 048
     Dates: start: 20171121, end: 20171122
  3. EUTHYROX [Concomitant]
     Active Substance: LEVOTHYROXINE SODIUM
  4. TOREM [Suspect]
     Active Substance: TORSEMIDE
     Indication: HYPERTENSION
     Route: 048
     Dates: end: 20180117
  5. DAFALGAN [Suspect]
     Active Substance: ACETAMINOPHEN
     Indication: PAIN
     Route: 048
     Dates: start: 20171029, end: 20171113
  6. PIPERACILLIN AND TAZOBACTAM [Concomitant]
     Active Substance: PIPERACILLIN SODIUM\TAZOBACTAM SODIUM
     Dates: start: 20171027, end: 20171113
  7. TRAMAL [Concomitant]
     Active Substance: TRAMADOL
     Route: 048
     Dates: start: 20171121
  8. CO-AMOXI [Suspect]
     Active Substance: AMOXICILLIN\CLAVULANATE POTASSIUM
     Indication: PYREXIA
     Route: 041
     Dates: start: 20171026, end: 20171027
  9. ACIDUM FOLICUM [Suspect]
     Active Substance: FOLIC ACID
     Indication: PRODUCT SUBSTITUTION
     Route: 048
     Dates: start: 20171027, end: 20180105
  10. METRONIDAZOLE. [Concomitant]
     Active Substance: METRONIDAZOLE
     Dates: start: 20171122, end: 20171127
  11. ANXIOLIT [Concomitant]
     Active Substance: OXAZEPAM
     Dates: start: 20171128
  12. MYCOSTATINE [Concomitant]
     Active Substance: NYSTATIN
     Dates: start: 20171122
  13. CEFEPIME [Concomitant]
     Active Substance: CEFEPIME HYDROCHLORIDE
     Dates: start: 20171122, end: 20171127
  14. LAXOBERON [Suspect]
     Active Substance: SODIUM PICOSULFATE
     Indication: CONSTIPATION
     Route: 048
     Dates: start: 20171030, end: 20180103
  15. TOREM [Suspect]
     Active Substance: TORSEMIDE
     Route: 048
     Dates: start: 201803, end: 201804
  16. BELOC ZOK [Suspect]
     Active Substance: METOPROLOL SUCCINATE
     Route: 048
     Dates: start: 20171121, end: 20171122
  17. DIGOXINE [Suspect]
     Active Substance: DIGOXIN
     Route: 041
     Dates: start: 20171121, end: 20171121
  18. LASIX [Suspect]
     Active Substance: FUROSEMIDE
     Route: 041
     Dates: start: 20171101, end: 20171107
  19. VI-DE 3 [Concomitant]
     Active Substance: CHOLECALCIFEROL
  20. CETIRIZINE [Suspect]
     Active Substance: CETIRIZINE HYDROCHLORIDE
     Indication: PRURITUS
     Route: 048
     Dates: start: 20171027, end: 20171103
  21. CIRCADIN [Suspect]
     Active Substance: MELATONIN
     Indication: INSOMNIA
     Route: 048
     Dates: start: 20171102, end: 20180105
  22. ALDACTONE [Concomitant]
     Active Substance: SPIRONOLACTONE
     Dates: end: 20171120
  23. XARELTO [Concomitant]
     Active Substance: RIVAROXABAN

REACTIONS (1)
  - Hepatic enzyme increased [Recovered/Resolved]

NARRATIVE: CASE EVENT DATE: 20171121
